FAERS Safety Report 6781150-1 (Version None)
Quarter: 2010Q2

REPORT INFORMATION
  Report Type: 
  Country: None (occurrence: None)
  Receive Date: 20100621
  Receipt Date: 20100610
  Transmission Date: 20101027
  Serious: Yes (Hospitalization)
  Sender: FDA-Public Use
  Company Number: JP-JNJFOC-20100507251

PATIENT
  Sex: Male
  Weight: 61 kg

DRUGS (15)
  1. REMICADE [Suspect]
     Indication: CROHN'S DISEASE
     Dosage: 5 INFUSIONS ON UNSPECIFIED DATES
     Route: 042
  2. REMICADE [Suspect]
     Route: 042
  3. REMICADE [Suspect]
     Route: 042
  4. REMICADE [Suspect]
     Route: 042
  5. REMICADE [Suspect]
     Route: 042
  6. REMICADE [Suspect]
     Route: 042
  7. REMICADE [Suspect]
     Dosage: 6TH INFUSION
     Route: 042
  8. DECADRON [Concomitant]
     Indication: PREMEDICATION
  9. SAXIZON [Concomitant]
     Indication: PREMEDICATION
  10. SAXIZON [Concomitant]
  11. SAXIZON [Concomitant]
  12. ALLEGRA [Concomitant]
  13. CHLORPHENIRAMINE MALEATE [Concomitant]
     Indication: PREMEDICATION
  14. CHLORPHENIRAMINE MALEATE [Concomitant]
  15. PREDONINE [Concomitant]

REACTIONS (8)
  - DECREASED APPETITE [None]
  - INFECTION [None]
  - INFUSION RELATED REACTION [None]
  - MELAENA [None]
  - OROPHARYNGEAL PAIN [None]
  - RENAL FAILURE [None]
  - TREMOR [None]
  - WHITE BLOOD CELL COUNT INCREASED [None]
